FAERS Safety Report 7025300-0 (Version None)
Quarter: 2010Q4

REPORT INFORMATION
  Report Type: 
  Country: None (occurrence: None)
  Receive Date: 20101001
  Receipt Date: 20100922
  Transmission Date: 20110411
  Serious: Yes (Other)
  Sender: FDA-Public Use
  Company Number: US-US-EMD SERONO, INC.-7003935

PATIENT
  Sex: Female
  Weight: 99 kg

DRUGS (9)
  1. REBIF [Suspect]
     Indication: MULTIPLE SCLEROSIS
     Dates: start: 20100215, end: 20100101
  2. REBIF [Suspect]
     Route: 058
     Dates: start: 20100101
  3. ZOLOFT [Concomitant]
     Route: 048
  4. VALTREX [Concomitant]
     Route: 048
  5. OMEPRAZOLE [Concomitant]
     Route: 048
  6. LEVOTHYROXINE SODIUM [Concomitant]
  7. PROAIR HFA [Concomitant]
  8. LIPITOR [Concomitant]
  9. ACETAMINOPHEN AND HYDROCODONE BITARTRATE [Concomitant]
     Dosage: 7.5/500MG TABLET

REACTIONS (3)
  - BENIGN OVARIAN TUMOUR [None]
  - INJECTION SITE PAIN [None]
  - PAIN [None]
